FAERS Safety Report 15477564 (Version 4)
Quarter: 2021Q3

REPORT INFORMATION
  Report Type: Report from Study
  Country: US (occurrence: US)
  Receive Date: 20181009
  Receipt Date: 20210811
  Transmission Date: 20211014
  Serious: Yes (Other)
  Sender: FDA-Public Use
  Company Number: US-SHIRE-US201837853

PATIENT
  Age: 20 Year
  Sex: Male

DRUGS (7)
  1. LANADELUMAB [Suspect]
     Active Substance: LANADELUMAB
     Indication: HEREDITARY ANGIOEDEMA
     Dosage: 300 MILLIGRAM, Q2WEEKS
     Route: 058
     Dates: start: 20180928
  2. FIRAZYR [Suspect]
     Active Substance: ICATIBANT ACETATE
     Indication: HEREDITARY ANGIOEDEMA
     Dosage: 30 MG, AS REQ^D
     Route: 065
  3. FIRAZYR [Suspect]
     Active Substance: ICATIBANT ACETATE
     Dosage: 3 ML
     Route: 058
     Dates: start: 20180402
  4. FIRAZYR [Suspect]
     Active Substance: ICATIBANT ACETATE
     Dosage: 3 ML
     Route: 058
     Dates: start: 20180402
  5. LANADELUMAB [Suspect]
     Active Substance: LANADELUMAB
     Dosage: 300 UNK
     Route: 058
  6. LANADELUMAB [Suspect]
     Active Substance: LANADELUMAB
     Dosage: 300 UNK
     Route: 058
     Dates: start: 20181214
  7. FIRAZYR [Suspect]
     Active Substance: ICATIBANT ACETATE
     Indication: HEREDITARY ANGIOEDEMA
     Dosage: 30 MG, AS REQ^D
     Route: 065

REACTIONS (11)
  - Injection site erythema [Recovered/Resolved]
  - Injection site pain [Recovered/Resolved]
  - COVID-19 [Recovering/Resolving]
  - Erythema [Recovered/Resolved]
  - Anxiety [Recovered/Resolved]
  - Burning sensation [Recovered/Resolved]
  - Injection site rash [Recovered/Resolved]
  - Pain [Recovered/Resolved]
  - Stress [Recovered/Resolved]
  - Hereditary angioedema [Recovering/Resolving]
  - Rash macular [Recovered/Resolved]

NARRATIVE: CASE EVENT DATE: 20180928
